FAERS Safety Report 17269724 (Version 1)
Quarter: 2020Q1

REPORT INFORMATION
  Report Type: Spontaneous
  Country: US (occurrence: US)
  Receive Date: 20200114
  Receipt Date: 20200114
  Transmission Date: 20200409
  Serious: Yes (Hospitalization, Other)
  Sender: FDA-Public Use
  Company Number: US-ALLERGAN-2001760US

PATIENT
  Sex: Female

DRUGS (1)
  1. MORPHINE SULFATE UNK [Suspect]
     Active Substance: MORPHINE SULFATE
     Indication: BACK PAIN

REACTIONS (7)
  - Sinus tachycardia [Unknown]
  - Renal tubular necrosis [Unknown]
  - Overdose [Unknown]
  - Fall [Unknown]
  - Erythema [Unknown]
  - Blister [Unknown]
  - Compartment syndrome [Recovered/Resolved with Sequelae]
